FAERS Safety Report 18000246 (Version 1)
Quarter: 2020Q3

REPORT INFORMATION
  Report Type: Spontaneous
  Country: US (occurrence: US)
  Receive Date: 20200709
  Receipt Date: 20200709
  Transmission Date: 20201103
  Serious: Yes (Hospitalization)
  Sender: FDA-Public Use
  Company Number: None

PATIENT
  Sex: Male
  Weight: 80 kg

DRUGS (3)
  1. CISPLATIN. [Suspect]
     Active Substance: CISPLATIN
     Dates: end: 20200614
  2. IFOSFAMIDE. [Suspect]
     Active Substance: IFOSFAMIDE
     Dates: end: 20200614
  3. TAXOL [Suspect]
     Active Substance: PACLITAXEL
     Dates: end: 20200610

REACTIONS (3)
  - Disease progression [None]
  - Febrile neutropenia [None]
  - Herpes zoster [None]

NARRATIVE: CASE EVENT DATE: 20200618
